FAERS Safety Report 17899216 (Version 1)
Quarter: 2020Q2

REPORT INFORMATION
  Report Type: Spontaneous
  Country: PL (occurrence: PL)
  Receive Date: 20200615
  Receipt Date: 20200615
  Transmission Date: 20200714
  Serious: Yes (Other)
  Sender: FDA-Public Use
  Company Number: PL-BAXTER-2020BAX012276

PATIENT
  Age: 58 Year
  Sex: Male

DRUGS (6)
  1. SANDOSTATIN LAR DEPOT [Suspect]
     Active Substance: OCTREOTIDE ACETATE
     Indication: PRODUCT USED FOR UNKNOWN INDICATION
     Dosage: 30 MG
     Route: 065
  2. FLUOROURACIL. [Suspect]
     Active Substance: FLUOROURACIL
     Indication: PRODUCT USED FOR UNKNOWN INDICATION
     Route: 065
  3. DOXIL [Suspect]
     Active Substance: DOXORUBICIN HYDROCHLORIDE
     Indication: PRODUCT USED FOR UNKNOWN INDICATION
     Route: 065
  4. CISPLATIN. [Suspect]
     Active Substance: CISPLATIN
     Indication: PRODUCT USED FOR UNKNOWN INDICATION
     Route: 065
  5. ETOPOSIDE. [Suspect]
     Active Substance: ETOPOSIDE
     Indication: PRODUCT USED FOR UNKNOWN INDICATION
     Route: 065
  6. EVEROLIMUS. [Suspect]
     Active Substance: EVEROLIMUS
     Indication: PRODUCT USED FOR UNKNOWN INDICATION
     Route: 065
     Dates: start: 201608

REACTIONS (14)
  - Impaired quality of life [Unknown]
  - Nausea [Unknown]
  - Pain [Unknown]
  - Toxicity to various agents [Unknown]
  - General physical health deterioration [Unknown]
  - Hepatic mass [Unknown]
  - Neoplasm progression [Unknown]
  - Pancreatic mass [Unknown]
  - Blood chromogranin A increased [Recovered/Resolved]
  - Disease progression [Unknown]
  - Drug intolerance [Unknown]
  - Weight decreased [Unknown]
  - Mucosal toxicity [Unknown]
  - Asthenia [Unknown]
